FAERS Safety Report 23951846 (Version 5)
Quarter: 2025Q1

REPORT INFORMATION
  Report Type: Spontaneous
  Country: US (occurrence: US)
  Receive Date: 20240607
  Receipt Date: 20250107
  Transmission Date: 20250409
  Serious: No
  Sender: ASTELLAS
  Company Number: US-ASTELLAS-2024US016208

PATIENT

DRUGS (1)
  1. IZERVAY [Suspect]
     Active Substance: AVACINCAPTAD PEGOL SODIUM
     Indication: Age-related macular degeneration
     Dosage: 2 MG, (0.1ML OF 20MG/ML SOLUTION), MONTHLY (DISPENSED EVERY 28 DAYS +- 7 DAYS)
     Route: 050
     Dates: start: 20240603, end: 20240603

REACTIONS (2)
  - Intercepted product preparation error [Unknown]
  - Syringe issue [Unknown]

NARRATIVE: CASE EVENT DATE: 20240603
